FAERS Safety Report 21837265 (Version 1)
Quarter: 2023Q1

REPORT INFORMATION
  Report Type: Spontaneous
  Country: US (occurrence: None)
  Receive Date: 20230106
  Receipt Date: 20230106
  Transmission Date: 20230418
  Serious: No
  Sender: FDA-Public Use
  Company Number: None

PATIENT
  Sex: Female

DRUGS (1)
  1. ICY HOT [Suspect]
     Active Substance: MENTHOL\METHYL SALICYLATE
     Indication: Myalgia
     Dosage: FREQUENCY : DAILY;?
     Route: 061
     Dates: start: 20230106

REACTIONS (1)
  - Chemical burn [None]

NARRATIVE: CASE EVENT DATE: 20230106
